FAERS Safety Report 10078520 (Version 4)
Quarter: 2014Q2

REPORT INFORMATION
  Report Type: Spontaneous
  Country: CH (occurrence: CH)
  Receive Date: 20140415
  Receipt Date: 20140612
  Transmission Date: 20141212
  Serious: Yes (Other)
  Sender: FDA-Public Use
  Company Number: CH-JNJFOC-20140407562

PATIENT
  Age: 30 Year
  Sex: Female

DRUGS (3)
  1. REMICADE [Suspect]
     Indication: CROHN^S DISEASE
     Route: 042
  2. REMICADE [Suspect]
     Indication: CROHN^S DISEASE
     Dosage: APPROXIMATELY 6 INFUSION.
     Route: 042
     Dates: start: 20130929, end: 20140309
  3. IMUREK [Suspect]
     Indication: CROHN^S DISEASE
     Route: 065

REACTIONS (2)
  - Mycobacterium tuberculosis complex test positive [Unknown]
  - Pneumonia chlamydial [Recovered/Resolved]
